FAERS Safety Report 7004172-4 (Version None)
Quarter: 2010Q3

REPORT INFORMATION
  Report Type: 
  Country: None (occurrence: None)
  Receive Date: 20100920
  Receipt Date: 20100225
  Transmission Date: 20110219
  Serious: No
  Sender: FDA-Public Use
  Company Number: US-WYE-H13828610

PATIENT
  Sex: Female
  Weight: 76.73 kg

DRUGS (1)
  1. PRISTIQ [Suspect]
     Indication: DEPRESSION
     Route: 048
     Dates: start: 20090801, end: 20100201

REACTIONS (2)
  - HYPERHIDROSIS [None]
  - NIGHT SWEATS [None]
